FAERS Safety Report 6219457-9 (Version None)
Quarter: 2009Q2

REPORT INFORMATION
  Report Type: 
  Country: None (occurrence: None)
  Receive Date: 20090609
  Receipt Date: 20090602
  Transmission Date: 20091009
  Serious: Yes (Other)
  Sender: FDA-Public Use
  Company Number: JP-BRISTOL-MYERS SQUIBB COMPANY-14627186

PATIENT
  Age: 62 Year
  Sex: Male

DRUGS (12)
  1. SPRYCEL [Suspect]
     Indication: ACUTE LYMPHOCYTIC LEUKAEMIA RECURRENT
     Dosage: TOOK 70MG(BID) FROM 12MAY2009-UNK
     Route: 048
     Dates: start: 20090414
  2. DAUNORUBICIN HCL [Suspect]
     Dates: start: 20090407, end: 20090409
  3. ONCOVIN [Suspect]
     Route: 042
     Dates: start: 20090407, end: 20090428
  4. PREDNISOLONE [Suspect]
     Route: 048
     Dates: start: 20090407, end: 20090416
  5. IMATINIB MESILATE [Concomitant]
     Dates: start: 20071031, end: 20090406
  6. NEUTROGIN [Concomitant]
     Route: 058
     Dates: start: 20090416, end: 20090420
  7. CYANOCOBALAMIN [Concomitant]
     Route: 048
  8. OMEPRAL [Concomitant]
     Route: 048
  9. BAKTAR [Concomitant]
     Route: 048
  10. CRAVIT [Concomitant]
     Dosage: HYDRATE FORM
     Route: 048
     Dates: start: 20090406, end: 20090419
  11. DIFLUCAN [Concomitant]
     Route: 048
     Dates: start: 20090406, end: 20090419
  12. CYPROTERONE ACETATE [Concomitant]

REACTIONS (9)
  - ANAEMIA [None]
  - ARRHYTHMIA [None]
  - MYALGIA [None]
  - NEUTROPHIL COUNT DECREASED [None]
  - PLATELET COUNT DECREASED [None]
  - PLEURAL EFFUSION [None]
  - RASH [None]
  - VASCULITIS [None]
  - WHITE BLOOD CELL COUNT DECREASED [None]
